FAERS Safety Report 25531486 (Version 3)
Quarter: 2025Q3

REPORT INFORMATION
  Report Type: Report from Study
  Country: US (occurrence: US)
  Receive Date: 20250708
  Receipt Date: 20250815
  Transmission Date: 20251020
  Serious: No
  Sender: MALLINCKRODT
  Company Number: US-MALLINCKRODT-MNK202503611

PATIENT
  Age: 51 Year
  Sex: Female

DRUGS (13)
  1. CORTICOTROPIN [Suspect]
     Active Substance: CORTICOTROPIN
     Indication: Nephrotic syndrome
     Dosage: 80 UNITS
     Route: 058
     Dates: start: 2022
  2. CORTICOTROPIN [Suspect]
     Active Substance: CORTICOTROPIN
     Indication: Nephrotic syndrome
  3. ALPRAZOLAM [Concomitant]
     Active Substance: ALPRAZOLAM
     Route: 048
  4. CRESTOR [Concomitant]
     Active Substance: ROSUVASTATIN CALCIUM
     Route: 048
  5. TRILIPIX [Concomitant]
     Active Substance: FENOFIBRIC ACID
  6. TENCON [BUTALBITAL;PARACETAMOL] [Concomitant]
     Route: 048
  7. RAIA VITAMINA D3 [Concomitant]
     Route: 048
  8. MINERALS\VITAMINS [Concomitant]
     Active Substance: MINERALS\VITAMINS
     Route: 048
  9. TRULICITY [Concomitant]
     Active Substance: DULAGLUTIDE
     Route: 058
  10. BUSPIRONE [Concomitant]
     Active Substance: BUSPIRONE HYDROCHLORIDE
     Route: 048
  11. TACROLIMUS [Concomitant]
     Active Substance: TACROLIMUS
     Route: 048
  12. TESSALON [Concomitant]
     Active Substance: BENZONATATE
     Route: 048
  13. FIORICET [Concomitant]
     Active Substance: ACETAMINOPHEN\BUTALBITAL\CAFFEINE

REACTIONS (5)
  - Fatigue [Not Recovered/Not Resolved]
  - Injection site pain [Unknown]
  - Injection site haematoma [Unknown]
  - Injection site discolouration [Unknown]
  - Incorrect dose administered [Unknown]

NARRATIVE: CASE EVENT DATE: 20250101
